FAERS Safety Report 8578246-0 (Version None)
Quarter: 2012Q3

REPORT INFORMATION
  Report Type: 
  Country: None (occurrence: None)
  Receive Date: 20120808
  Receipt Date: 20120801
  Transmission Date: 20120928
  Serious: Yes (Hospitalization, Disabling, Other)
  Sender: FDA-Public Use
  Company Number: US-SANOFI-AVENTIS-2012SA050016

PATIENT
  Sex: Male
  Weight: 117.93 kg

DRUGS (6)
  1. PREVACID [Concomitant]
     Dosage: 2 OR 3 TIMES DAILY BEFORE MEALS
     Dates: start: 20020101
  2. VITAMIN TAB [Concomitant]
     Indication: VOLUME BLOOD INCREASED
     Dosage: ONE DAILY
     Dates: start: 20020101
  3. SOLOSTAR [Suspect]
     Indication: TYPE 2 DIABETES MELLITUS
     Dates: start: 20020101
  4. LANTUS [Suspect]
     Indication: TYPE 2 DIABETES MELLITUS
     Dosage: DOSE:90 UNIT(S)
     Route: 058
     Dates: start: 20020101
  5. NOVOLOG [Concomitant]
     Indication: TYPE 2 DIABETES MELLITUS
     Dosage: USE FLEX PEN AND BOTTLE BEFORE MEALS AND TOOK 70-72 UNITS.
     Dates: start: 20020101
  6. POTASSIUM [Concomitant]
     Dosage: ONE DAILY.
     Dates: start: 20020101

REACTIONS (3)
  - BILIARY COLIC [None]
  - HEPATIC CIRRHOSIS [None]
  - BLOOD GLUCOSE FLUCTUATION [None]
